FAERS Safety Report 6931986-9 (Version None)
Quarter: 2010Q3

REPORT INFORMATION
  Report Type: 
  Country: None (occurrence: None)
  Receive Date: 20100819
  Receipt Date: 20100810
  Transmission Date: 20110219
  Serious: Yes (Other)
  Sender: FDA-Public Use
  Company Number: GB-B.I. PHARMACEUTICALS,INC./RIDGEFIELD-2010-BP-05370BP

PATIENT
  Age: 28 Year
  Sex: Female

DRUGS (2)
  1. VIRAMUNE [Suspect]
     Indication: HIV INFECTION
     Dosage: 400 MG
     Route: 048
     Dates: start: 20090714
  2. EPZICOM [Concomitant]
     Indication: HIV INFECTION
     Route: 048
     Dates: start: 20090714

REACTIONS (1)
  - PLACENTAL DISORDER [None]
